FAERS Safety Report 4751179-3 (Version None)
Quarter: 2005Q3

REPORT INFORMATION
  Report Type: 
  Country: None (occurrence: None)
  Receive Date: 20050822
  Receipt Date: 20050811
  Transmission Date: 20060218
  Serious: Yes (Hospitalization, Other)
  Sender: FDA-Public Use
  Company Number: UKP05000289

PATIENT
  Age: 66 Year
  Weight: 101 kg

DRUGS (1)
  1. ASACOL [Suspect]
     Indication: COLITIS
     Dosage: 400 MG, ORAL
     Route: 048
     Dates: start: 20010101, end: 20050517

REACTIONS (1)
  - CRYPTOGENIC ORGANIZING PNEUMONIA [None]
